FAERS Safety Report 14826717 (Version 1)
Quarter: 2018Q2

REPORT INFORMATION
  Report Type: Spontaneous
  Country: US (occurrence: US)
  Receive Date: 20180405
  Receipt Date: 20180405
  Transmission Date: 20180711
  Serious: Yes (Hospitalization)
  Sender: FDA-Public Use
  Company Number: None

PATIENT
  Age: 79 Year
  Sex: Male

DRUGS (7)
  1. DIGOXIN 0.25MG [Concomitant]
  2. COUMADIN 2 MG [Concomitant]
  3. EPLERONONE 25MG [Concomitant]
  4. ROSUVASTATIN 10MG [Concomitant]
     Active Substance: ROSUVASTATIN
  5. TORSEMIDE 20MG [Concomitant]
     Active Substance: TORSEMIDE
  6. LATANOPROST OPHTH SOLUNTION 0.005% [Concomitant]
  7. VEMLIDY [Suspect]
     Active Substance: TENOFOVIR ALAFENAMIDE FUMARATE
     Indication: HEPATITIS B
     Route: 048
     Dates: start: 20180307

REACTIONS (1)
  - Hospitalisation [None]

NARRATIVE: CASE EVENT DATE: 20180404
